FAERS Safety Report 6937435-9 (Version None)
Quarter: 2010Q3

REPORT INFORMATION
  Report Type: 
  Country: None (occurrence: None)
  Receive Date: 20100823
  Receipt Date: 20100819
  Transmission Date: 20110219
  Serious: Yes (Hospitalization)
  Sender: FDA-Public Use
  Company Number: IE-ROCHE-668697

PATIENT
  Sex: Female
  Weight: 73 kg

DRUGS (17)
  1. BEVACIZUMAB [Suspect]
     Indication: BREAST CANCER
     Dosage: DOSE LEVEL: 15 MG/KG, DOSE FORM: VIALS
     Route: 042
     Dates: start: 20090729, end: 20090819
  2. BEVACIZUMAB [Suspect]
     Dosage: DOSE LEVEL: 15 MG/KG, DOSE FORM: VIALS
     Route: 042
     Dates: start: 20090909, end: 20091111
  3. BEVACIZUMAB [Suspect]
     Dosage: DOSE LEVEL: 15 MG/KG, DOSE FORM: VIALS
     Route: 042
     Dates: start: 20091113
  4. TRASTUZUMAB [Suspect]
     Indication: BREAST CANCER
     Dosage: DOSE LEVEL: 6 MG/KG, DOSE FORM: VIAL
     Route: 042
     Dates: start: 20090729, end: 20091021
  5. TRASTUZUMAB [Suspect]
     Dosage: DOSE LEVEL: 6 MG/KG
     Route: 042
     Dates: end: 20091111
  6. TRASTUZUMAB [Suspect]
     Dosage: DOSE LEVEL: 6 MG/KG.
     Route: 042
     Dates: start: 20091113
  7. CARBOPLATIN [Suspect]
     Indication: BREAST CANCER
     Dosage: DOSE LEVEL: 6 AUC, DOSE FORM: VIAL
     Route: 042
     Dates: start: 20090729
  8. CARBOPLATIN [Suspect]
     Dosage: DOSE LEVEL: 5 AUC
     Route: 042
     Dates: start: 20091021, end: 20091111
  9. CARBOPLATIN [Suspect]
     Dosage: DOSE LEVEL: 5 AUC
     Route: 042
     Dates: start: 20091113
  10. DOCETAXEL [Suspect]
     Indication: BREAST CANCER
     Dosage: DOSE LEVEL: 75 MG/M2, DOSE FORM: VIAL
     Route: 042
     Dates: start: 20090729
  11. DOCETAXEL [Suspect]
     Dosage: DOSE LEVEL: 60 MG/M2
     Route: 042
     Dates: start: 20091021, end: 20091111
  12. DOCETAXEL [Suspect]
     Dosage: DOSE LEVEL: 60 MG/M2
     Route: 042
     Dates: start: 20091113
  13. NORTEM [Concomitant]
  14. ZOTON [Concomitant]
  15. MOTILIUM [Concomitant]
     Dosage: TDD REPORTED: 30 MG
  16. VALOID [Concomitant]
     Dosage: TDD DOSE REPORTED: 50 MG.
  17. NEULASTA [Concomitant]
     Dosage: TDD REPORTED: 6 MG/24 HRS POST CHEMO ONLY.
     Route: 058

REACTIONS (4)
  - AORTIC VALVE INCOMPETENCE [None]
  - DYSPNOEA [None]
  - HAEMOGLOBIN ABNORMAL [None]
  - PERICARDIAL EFFUSION [None]
